FAERS Safety Report 9401871 (Version 2)
Quarter: 2014Q1

REPORT INFORMATION
  Report Type: Spontaneous
  Country: US (occurrence: US)
  Receive Date: 20130716
  Receipt Date: 20140226
  Transmission Date: 20141002
  Serious: Yes (Other)
  Sender: FDA-Public Use
  Company Number: US-ASTRAZENECA-2013SE51436

PATIENT
  Age: 49 Year
  Sex: Female

DRUGS (12)
  1. SEROQUEL XR [Suspect]
     Route: 048
  2. MORPHINE [Suspect]
     Route: 065
  3. CYMBALTA [Concomitant]
  4. CYMBALTA [Concomitant]
  5. TOPAMAX [Concomitant]
  6. XANAX [Concomitant]
  7. METFORMIN [Concomitant]
  8. COLACE [Concomitant]
  9. NEXIUM [Concomitant]
  10. CARDIOVIAL [Concomitant]
  11. VESICARE [Concomitant]
  12. DICYCLAMINE [Concomitant]

REACTIONS (23)
  - Heat stroke [Recovering/Resolving]
  - Toxicity to various agents [Recovering/Resolving]
  - Neuroleptic malignant syndrome [Recovering/Resolving]
  - Extrapyramidal disorder [Recovering/Resolving]
  - Musculoskeletal stiffness [Recovering/Resolving]
  - White blood cell count increased [Unknown]
  - Blood electrolytes abnormal [Unknown]
  - Pain [Recovering/Resolving]
  - Depression [Recovering/Resolving]
  - Delirium [Recovering/Resolving]
  - Disturbance in attention [Recovering/Resolving]
  - Incontinence [Recovering/Resolving]
  - Mydriasis [Recovering/Resolving]
  - Memory impairment [Recovering/Resolving]
  - Blood sodium decreased [Unknown]
  - C-reactive protein increased [Unknown]
  - Amylase decreased [Unknown]
  - Confusional state [Recovering/Resolving]
  - Blood creatine phosphokinase increased [Unknown]
  - Pyrexia [Recovering/Resolving]
  - Aspartate aminotransferase increased [Unknown]
  - Bradykinesia [Recovering/Resolving]
  - Blood glucose increased [Unknown]
